FAERS Safety Report 17272507 (Version 1)
Quarter: 2020Q1

REPORT INFORMATION
  Report Type: Spontaneous
  Country: US (occurrence: US)
  Receive Date: 20200114
  Receipt Date: 20200114
  Transmission Date: 20200409
  Serious: Yes (Hospitalization)
  Sender: FDA-Public Use
  Company Number: None

PATIENT
  Age: 78 Year
  Sex: Male
  Weight: 80.1 kg

DRUGS (5)
  1. BLOOD PRESSURE [Concomitant]
  2. EYE DROPS [Concomitant]
     Active Substance: UNSPECIFIED INGREDIENT
  3. VITAMINS [Concomitant]
     Active Substance: VITAMINS
  4. PROSTRATE HEALTH [Concomitant]
  5. ACTIVASE [Suspect]
     Active Substance: ALTEPLASE
     Indication: CATHETER MANAGEMENT

REACTIONS (1)
  - Incorrect dose administered [None]

NARRATIVE: CASE EVENT DATE: 20200102
